FAERS Safety Report 6483587-7 (Version None)
Quarter: 2009Q4

REPORT INFORMATION
  Report Type: 
  Country: None (occurrence: None)
  Receive Date: 20091209
  Receipt Date: 20091127
  Transmission Date: 20100525
  Serious: Yes (Other)
  Sender: FDA-Public Use
  Company Number: CA-CELGENEUS-028-20785-08061506

PATIENT
  Sex: Male

DRUGS (2)
  1. THALOMID [Suspect]
     Indication: MULTIPLE MYELOMA
     Route: 048
     Dates: start: 20080512, end: 20080601
  2. THALOMID [Suspect]
     Dosage: 50MG-100MG
     Route: 048
     Dates: start: 20080601, end: 20080616

REACTIONS (3)
  - AMAUROSIS FUGAX [None]
  - PHOTOPSIA [None]
  - VISUAL ACUITY REDUCED [None]
